FAERS Safety Report 21494230 (Version 1)
Quarter: 2022Q4

REPORT INFORMATION
  Report Type: Spontaneous
  Country: US (occurrence: US)
  Receive Date: 20221021
  Receipt Date: 20221021
  Transmission Date: 20230112
  Serious: No
  Sender: FDA-Public Use
  Company Number: US-INSUD PHARMA-2210US04214

PATIENT

DRUGS (1)
  1. SLYND [Suspect]
     Active Substance: DROSPIRENONE
     Indication: Acne
     Dosage: UNKNOWN
     Route: 048
     Dates: start: 202111

REACTIONS (4)
  - Dysmenorrhoea [Recovered/Resolved]
  - Abdominal pain upper [Recovered/Resolved]
  - Amenorrhoea [Not Recovered/Not Resolved]
  - Off label use [Unknown]

NARRATIVE: CASE EVENT DATE: 20211101
